FAERS Safety Report 5754573-7 (Version None)
Quarter: 2008Q2

REPORT INFORMATION
  Report Type: 
  Country: None (occurrence: None)
  Receive Date: 20080530
  Receipt Date: 20080521
  Transmission Date: 20081010
  Serious: Yes (Hospitalization)
  Sender: FDA-Public Use
  Company Number: CH-PFIZER INC-2008043397

PATIENT
  Sex: Male

DRUGS (4)
  1. ALDACTONE [Suspect]
     Dosage: DAILY DOSE:100MG
     Route: 048
  2. NEXIUM [Suspect]
     Dosage: DAILY DOSE:40MG
     Route: 048
  3. TORSEMIDE [Suspect]
     Dosage: DAILY DOSE:10MG
     Route: 048
  4. ANTABUSE [Suspect]
     Route: 048
     Dates: start: 20070625, end: 20070703

REACTIONS (2)
  - DELUSION [None]
  - HALLUCINATION [None]
